FAERS Safety Report 17658969 (Version 1)
Quarter: 2020Q2

REPORT INFORMATION
  Report Type: Spontaneous
  Country: US (occurrence: US)
  Receive Date: 20200413
  Receipt Date: 20200413
  Transmission Date: 20200713
  Serious: No
  Sender: FDA-Public Use
  Company Number: US-AMGEN-USASP2020059133

PATIENT
  Age: 68 Year
  Sex: Male

DRUGS (2)
  1. VASCEPA [Concomitant]
     Active Substance: ICOSAPENT ETHYL
  2. REPATHA [Suspect]
     Active Substance: EVOLOCUMAB
     Indication: PRODUCT USED FOR UNKNOWN INDICATION
     Dosage: UNK
     Route: 065
     Dates: start: 201809

REACTIONS (2)
  - Dysphonia [Unknown]
  - Flushing [Unknown]

NARRATIVE: CASE EVENT DATE: 202001
